FAERS Safety Report 4777114-X (Version None)
Quarter: 2005Q3

REPORT INFORMATION
  Report Type: 
  Country: None (occurrence: None)
  Receive Date: 20050921
  Receipt Date: 20050912
  Transmission Date: 20060218
  Serious: Yes (Death)
  Sender: FDA-Public Use
  Company Number: 2005127094

PATIENT
  Age: 75 Year
  Sex: Female
  Weight: 78.0187 kg

DRUGS (10)
  1. ZOLOFT [Suspect]
     Indication: DEPRESSION
     Dosage: 100 MG, ORAL
     Route: 048
  2. GLUCOTROL XL [Suspect]
     Indication: DIABETES MELLITUS
     Dosage: (10 MG,)
  3. GLIPIZIDE [Suspect]
     Indication: DIABETES MELLITUS
     Dosage: (5 MG,)
  4. METFORMIN HCL [Concomitant]
  5. BENICAR HCT [Concomitant]
  6. PREVACID [Concomitant]
  7. ZETIA [Concomitant]
  8. TEQUIN [Concomitant]
  9. PREMARIN [Concomitant]
  10. SYNTHROID [Concomitant]

REACTIONS (1)
  - DEATH [None]
